FAERS Safety Report 19211067 (Version 1)
Quarter: 2021Q2

REPORT INFORMATION
  Report Type: Spontaneous
  Country: CH (occurrence: CH)
  Receive Date: 20210504
  Receipt Date: 20210504
  Transmission Date: 20210717
  Serious: Yes (Other)
  Sender: FDA-Public Use
  Company Number: CH-JNJFOC-20210460664

PATIENT
  Age: 80 Year
  Sex: Male

DRUGS (24)
  1. ATORVASTATINE [ATORVASTATIN] [Suspect]
     Active Substance: ATORVASTATIN
     Indication: CEREBROVASCULAR ACCIDENT PROPHYLAXIS
     Dosage: 80 MG, QD
     Dates: start: 20210326, end: 20210408
  2. DEXAMETHASONE. [Concomitant]
     Active Substance: DEXAMETHASONE
     Dates: start: 20210323, end: 20210401
  3. LAXOBERON [Concomitant]
     Active Substance: SODIUM PICOSULFATE
     Route: 048
     Dates: start: 20210329, end: 20210408
  4. CEFTRIAXONE. [Suspect]
     Active Substance: CEFTRIAXONE
     Indication: SEPSIS
     Dosage: 2 G, QD
     Dates: start: 20210403, end: 20210404
  5. TEMESTA [LORAZEPAM] [Concomitant]
     Active Substance: LORAZEPAM
     Dates: start: 20210323, end: 20210323
  6. LASIX [Concomitant]
     Active Substance: FUROSEMIDE
     Dates: start: 20210404, end: 20210405
  7. LACRYVISC [Concomitant]
     Active Substance: CARBOMER
     Dates: start: 20210402
  8. XARELTO [Suspect]
     Active Substance: RIVAROXABAN
     Indication: ARRHYTHMIA PROPHYLAXIS
     Dosage: 15 MG, UNK
     Route: 048
     Dates: start: 20210323, end: 20210325
  9. BACTRIM [Suspect]
     Active Substance: SULFAMETHOXAZOLE\TRIMETHOPRIM
     Indication: URINARY TRACT INFECTION
     Dosage: 1 DF, BID
     Route: 048
     Dates: start: 20210402, end: 20210403
  10. CLEXANE [Concomitant]
     Active Substance: ENOXAPARIN SODIUM
     Route: 058
     Dates: start: 20210325
  11. HALDOL DECANOATE [Concomitant]
     Active Substance: HALOPERIDOL DECANOATE
     Dosage: UNK UNK, PRN
     Route: 048
     Dates: start: 20210324, end: 20210329
  12. PURSANA [Concomitant]
     Active Substance: FIG FRUIT OIL\SORBITOL
     Route: 048
     Dates: start: 20210325
  13. AMLODIPINE [Concomitant]
     Active Substance: AMLODIPINE BESYLATE
     Route: 048
     Dates: start: 20210327, end: 20210408
  14. QUETIAPIN [Concomitant]
     Active Substance: QUETIAPINE
     Dosage: UNK, PRN
     Route: 048
     Dates: start: 20210331, end: 20210408
  15. TORASEMIDE [Concomitant]
     Active Substance: TORSEMIDE
     Dates: start: 20210406, end: 20210406
  16. NIFEDIPINE. [Concomitant]
     Active Substance: NIFEDIPINE
     Dates: start: 20210326, end: 20210326
  17. AMIKIN [Concomitant]
     Active Substance: AMIKACIN SULFATE
     Dates: start: 20210404, end: 20210404
  18. CEFTRIAXONE. [Suspect]
     Active Substance: CEFTRIAXONE
     Indication: SEPSIS
     Dosage: 2 G, QD
     Dates: start: 20210407, end: 20210408
  19. TEMESTA [LORAZEPAM] [Concomitant]
     Active Substance: LORAZEPAM
     Dosage: UNK
     Dates: start: 20210326, end: 20210326
  20. MYCOSTATINE [Concomitant]
     Active Substance: NYSTATIN
     Route: 048
     Dates: start: 20210331, end: 20210408
  21. DAFALGAN [Concomitant]
     Active Substance: ACETAMINOPHEN
     Dosage: UNK, PRN
     Dates: start: 20210402, end: 20210402
  22. BELOC ZOK [Concomitant]
     Active Substance: METOPROLOL SUCCINATE
     Dates: start: 20210323, end: 20210323
  23. PIPERACILLIN AND TAZOBACTAM [Suspect]
     Active Substance: PIPERACILLIN SODIUM\TAZOBACTAM SODIUM
     Indication: SEPSIS
     Dosage: 4.5 G, TID
     Route: 041
     Dates: start: 20210404, end: 20210407
  24. DISTRANEURIN [CLOMETHIAZOLE EDISILATE] [Concomitant]
     Dosage: UNK UNK, PRN
     Dates: start: 20210323, end: 20210408

REACTIONS (2)
  - Liver function test abnormal [Recovering/Resolving]
  - Rash maculo-papular [Not Recovered/Not Resolved]

NARRATIVE: CASE EVENT DATE: 20210331
